FAERS Safety Report 13533892 (Version 1)
Quarter: 2017Q2

REPORT INFORMATION
  Report Type: Spontaneous
  Country: US (occurrence: US)
  Receive Date: 20170510
  Receipt Date: 20170510
  Transmission Date: 20170830
  Serious: No
  Sender: FDA-Public Use
  Company Number: US-SA-2017SA070575

PATIENT
  Age: 44 Year
  Sex: Female

DRUGS (2)
  1. XYZAL ALLERGY 24HR [Suspect]
     Active Substance: LEVOCETIRIZINE DIHYDROCHLORIDE
     Dosage: AT 5 PM
     Route: 065
  2. XYZAL ALLERGY 24HR [Suspect]
     Active Substance: LEVOCETIRIZINE DIHYDROCHLORIDE
     Dosage: THIS MORNING
     Route: 065

REACTIONS (4)
  - Paranasal sinus discomfort [Not Recovered/Not Resolved]
  - Secretion discharge [Not Recovered/Not Resolved]
  - Extra dose administered [Unknown]
  - Oropharyngeal pain [Not Recovered/Not Resolved]
